FAERS Safety Report 20804405 (Version 1)
Quarter: 2022Q2

REPORT INFORMATION
  Report Type: Spontaneous
  Country: US (occurrence: US)
  Receive Date: 20220509
  Receipt Date: 20220509
  Transmission Date: 20220721
  Serious: Yes (Hospitalization)
  Sender: FDA-Public Use
  Company Number: US-AMNEAL PHARMACEUTICALS-2022-AMRX-01199

PATIENT
  Sex: Male

DRUGS (2)
  1. GABAPENTIN [Suspect]
     Active Substance: GABAPENTIN
     Indication: Hypoaesthesia
     Route: 048
  2. GABAPENTIN [Suspect]
     Active Substance: GABAPENTIN
     Indication: Pain in extremity

REACTIONS (5)
  - Illness [Unknown]
  - Wound secretion [Unknown]
  - Wound [Unknown]
  - Skin discolouration [Unknown]
  - Pyrexia [Unknown]

NARRATIVE: CASE EVENT DATE: 20220401
